FAERS Safety Report 13949584 (Version 2)
Quarter: 2020Q2

REPORT INFORMATION
  Report Type: Spontaneous
  Country: FR (occurrence: FR)
  Receive Date: 20170908
  Receipt Date: 20200513
  Transmission Date: 20200713
  Serious: Yes (Hospitalization)
  Sender: FDA-Public Use
  Company Number: FR-FERRINGPH-2017FE04301

PATIENT
  Age: 29 Year
  Sex: Female

DRUGS (1)
  1. PROPESS [Suspect]
     Active Substance: DINOPROSTONE
     Indication: CERVICAL DILATATION
     Dosage: 1 DF PER DAY
     Route: 067
     Dates: start: 20170815, end: 20170816

REACTIONS (4)
  - Prescribed overdose [Recovered/Resolved]
  - Pain [Recovered/Resolved]
  - Vulval oedema [Recovered/Resolved]
  - Off label use [Recovered/Resolved]

NARRATIVE: CASE EVENT DATE: 20170815
